FAERS Safety Report 26032617 (Version 2)
Quarter: 2025Q4

REPORT INFORMATION
  Report Type: Spontaneous
  Country: US (occurrence: US)
  Receive Date: 20251112
  Receipt Date: 20251209
  Transmission Date: 20260118
  Serious: No
  Sender: CIPLA
  Company Number: US-CIPLA LTD.-2025US13926

PATIENT

DRUGS (2)
  1. LENALIDOMIDE [Suspect]
     Active Substance: LENALIDOMIDE
     Indication: Follicle centre lymphoma diffuse small cell lymphoma
     Dosage: 20 MILLIGRAM, QD (ONCE DAILY FOR 21 DAYS, THEN 7 DAYS OFF)
     Route: 048
     Dates: start: 202508, end: 2025
  2. LENALIDOMIDE [Suspect]
     Active Substance: LENALIDOMIDE
     Dosage: 15 MILLIGRAM, QD (ONCE DAILY FOR 21 DAYS, THEN 7 DAYS OFF)
     Route: 048
     Dates: start: 2025

REACTIONS (5)
  - Ligament rupture [Unknown]
  - Rash vesicular [Recovering/Resolving]
  - Muscle spasms [Unknown]
  - Inappropriate schedule of product administration [Unknown]
  - Gout [Unknown]

NARRATIVE: CASE EVENT DATE: 20250101
